FAERS Safety Report 23762493 (Version 1)
Quarter: 2024Q2

REPORT INFORMATION
  Report Type: Spontaneous
  Country: CN (occurrence: CN)
  Receive Date: 20240419
  Receipt Date: 20240419
  Transmission Date: 20240716
  Serious: Yes (Other)
  Sender: FDA-Public Use
  Company Number: None

PATIENT
  Age: 68 Year
  Sex: Female
  Weight: 61 kg

DRUGS (8)
  1. CYCLOPHOSPHAMIDE [Suspect]
     Active Substance: CYCLOPHOSPHAMIDE
     Indication: Diffuse large B-cell lymphoma stage IV
     Dosage: 0.6 G, ONE TIME IN ONE DAY, DILUTED WITH 40 ML OF 0.9% SODIUM CHLORIDE, INTRAVENOUS PUSH
     Route: 042
     Dates: start: 20240306, end: 20240306
  2. CYCLOPHOSPHAMIDE [Suspect]
     Active Substance: CYCLOPHOSPHAMIDE
     Dosage: 0.4 G, 4 TIME IN 4 DAYS, DILUTED WITH 30 ML OF 0.9% SODIUM CHLORIDE, INTRAVENOUS PUSH
     Route: 041
     Dates: start: 20240306, end: 20240307
  3. SODIUM CHLORIDE [Suspect]
     Active Substance: SODIUM CHLORIDE
     Indication: Medication dilution
     Dosage: (0.9%) 40 ML, ONE TIME IN ONE DAY, USED TO DILUTE 0.6 G OF CYCLOPHOSPHAMIDE, INTRAVENOUS PUSH
     Route: 041
     Dates: start: 20240306, end: 20240306
  4. SODIUM CHLORIDE [Suspect]
     Active Substance: SODIUM CHLORIDE
     Dosage: (0.9%) 30 ML, 4 IN 4 DAYS, USED TO DILUTE 0.4 G OF CYCLOPHOSPHAMIDE, INTRAVENOUS PUSH
     Route: 041
     Dates: start: 20240306, end: 20240307
  5. SODIUM CHLORIDE [Suspect]
     Active Substance: SODIUM CHLORIDE
     Dosage: (0.9%) 30 ML, ONE TIME IN ONE DAY, USED TO DILUTE 3 MG OF VINDESINE SULFATE, INTRAVENOUS PUSH
     Route: 041
     Dates: start: 20240306, end: 20240306
  6. SODIUM CHLORIDE [Suspect]
     Active Substance: SODIUM CHLORIDE
     Dosage: (0.9%) 250 ML, ONE TIME IN ONE DAY, USED TO DILUTE 40 MG OF EPIRUBICIN HYDROCHLORIDE
     Route: 041
     Dates: start: 20240306, end: 20240306
  7. EPIRUBICIN HYDROCHLORIDE [Suspect]
     Active Substance: EPIRUBICIN HYDROCHLORIDE
     Indication: Diffuse large B-cell lymphoma stage IV
     Dosage: 40 MG, ONE TIME IN ONE DAY, DILUTED WITH 250 ML OF 0.9% SODIUM CHLORIDE
     Route: 041
     Dates: start: 20240306, end: 20240306
  8. VINDESINE SULFATE [Suspect]
     Active Substance: VINDESINE SULFATE
     Indication: Diffuse large B-cell lymphoma stage IV
     Dosage: 3 MG, ONE TIME IN ONE DAY, DILUTED WITH 30 ML OF 0.9% SODIUM CHLORIDE, INTRAVENOUS PUSH
     Route: 041
     Dates: start: 20240306, end: 20240306

REACTIONS (1)
  - White blood cell count decreased [Recovering/Resolving]

NARRATIVE: CASE EVENT DATE: 20240313
